FAERS Safety Report 25374342 (Version 1)
Quarter: 2025Q2

REPORT INFORMATION
  Report Type: Report from Study
  Country: PH (occurrence: PH)
  Receive Date: 20250529
  Receipt Date: 20250529
  Transmission Date: 20250716
  Serious: Yes (Hospitalization)
  Sender: OTSUKA
  Company Number: PH-MMM-Otsuka-CD6N89FM

PATIENT
  Sex: Male

DRUGS (1)
  1. TOLVAPTAN [Suspect]
     Active Substance: TOLVAPTAN
     Indication: Colon cancer
     Dosage: 1 DF, QD (15 MG 1 TABLET ONCE A DAY)
     Route: 048

REACTIONS (2)
  - Dialysis [Unknown]
  - Product use in unapproved indication [Unknown]

NARRATIVE: CASE EVENT DATE: 20240101
